FAERS Safety Report 7414371-5 (Version None)
Quarter: 2011Q2

REPORT INFORMATION
  Report Type: 
  Country: None (occurrence: None)
  Receive Date: 20110414
  Receipt Date: 20110401
  Transmission Date: 20111010
  Serious: Yes (Hospitalization, Other)
  Sender: FDA-Public Use
  Company Number: US-ELI_LILLY_AND_COMPANY-US201003002779

PATIENT
  Sex: Female

DRUGS (9)
  1. FORTEO [Suspect]
     Indication: OSTEOPOROSIS
     Dosage: UNK, UNKNOWN
     Route: 065
     Dates: start: 20090501
  2. JANUVIA [Concomitant]
  3. ALLEGRA [Concomitant]
  4. MULTI-VITAMIN [Concomitant]
  5. AMARYL [Concomitant]
  6. BYSTOLIC [Concomitant]
  7. PLAVIX [Concomitant]
  8. ASPIRIN [Concomitant]
  9. ZOCOR [Concomitant]

REACTIONS (8)
  - PAIN [None]
  - WRIST FRACTURE [None]
  - HIP FRACTURE [None]
  - CEREBROVASCULAR ACCIDENT [None]
  - RENAL DISORDER [None]
  - FALL [None]
  - CAROTID ARTERY OCCLUSION [None]
  - MUSCLE SPASMS [None]
